FAERS Safety Report 19259775 (Version 2)
Quarter: 2021Q2

REPORT INFORMATION
  Report Type: Spontaneous
  Country: US (occurrence: US)
  Receive Date: 20210514
  Receipt Date: 20210630
  Transmission Date: 20210717
  Serious: Yes (Other)
  Sender: FDA-Public Use
  Company Number: US-PFIZER INC-2021486880

PATIENT
  Age: 73 Year
  Sex: Male
  Weight: 101.59 kg

DRUGS (11)
  1. ALLOPURINOL. [Concomitant]
     Active Substance: ALLOPURINOL
     Dosage: 100 MG
  2. LYRICA [Concomitant]
     Active Substance: PREGABALIN
     Dosage: 100 MG
  3. ATORVASTATIN CALCIUM. [Concomitant]
     Active Substance: ATORVASTATIN CALCIUM
     Dosage: 10 MG
  4. SUTENT [Suspect]
     Active Substance: SUNITINIB MALATE
     Indication: RENAL CANCER
     Dosage: 37.5 MG, CYCLIC (DAILY 4 WEEKS ON 2 WEEKS OFF)
     Route: 048
     Dates: start: 20210311
  5. DOCUSATE SODIUM. [Concomitant]
     Active Substance: DOCUSATE SODIUM
     Dosage: 100 MG
  6. LISINOPRIL. [Concomitant]
     Active Substance: LISINOPRIL
     Dosage: 10 MG
  7. ATENOLOL. [Concomitant]
     Active Substance: ATENOLOL
     Dosage: 100 MG
  8. METHOCARBAMOL. [Concomitant]
     Active Substance: METHOCARBAMOL
     Dosage: 500 MG
  9. TYLENOL [Concomitant]
     Active Substance: ACETAMINOPHEN
     Dosage: 325 MG
  10. IRON [Concomitant]
     Active Substance: IRON
     Dosage: UNK [IRON 159(45)MG TABLET ER]
  11. SENNA?S [DOCUSATE SODIUM;SENNA ALEXANDRINA] [Concomitant]
     Dosage: UNK [SENNA?S 8.6MG?50MG TABLET]

REACTIONS (4)
  - Joint swelling [Unknown]
  - Hypertension [Unknown]
  - Peripheral swelling [Unknown]
  - Platelet count decreased [Unknown]
